FAERS Safety Report 9052666 (Version 1)
Quarter: 2013Q1

REPORT INFORMATION
  Report Type: Spontaneous
  Country: US (occurrence: US)
  Receive Date: 20130207
  Receipt Date: 20130207
  Transmission Date: 20140127
  Serious: No
  Sender: FDA-Public Use
  Company Number: US-009507513-1301USA013311

PATIENT
  Age: 76 None
  Sex: Female

DRUGS (2)
  1. COSOPT PF [Suspect]
     Indication: GLAUCOMA
     Dosage: ONE DROP AT 7A.M. AND 7 P.M. IN THE RIGHT EYE
     Route: 047
     Dates: start: 20130108, end: 20130123
  2. ZOCOR [Concomitant]

REACTIONS (3)
  - Drug ineffective [Unknown]
  - Vision blurred [Recovering/Resolving]
  - Product quality issue [Unknown]
